FAERS Safety Report 17256098 (Version 4)
Quarter: 2020Q2

REPORT INFORMATION
  Report Type: Report from Study
  Country: BR (occurrence: BR)
  Receive Date: 20200110
  Receipt Date: 20200430
  Transmission Date: 20200713
  Serious: Yes (Death, Hospitalization, Disabling)
  Sender: FDA-Public Use
  Company Number: BR-ROCHE-2507266

PATIENT
  Age: 33 Year
  Sex: Female
  Weight: 80 kg

DRUGS (11)
  1. CYCLOPHOSPHAMIDE. [Suspect]
     Active Substance: CYCLOPHOSPHAMIDE
     Dosage: DOSE OF LAST STUDY DRUG A ADMINISTERED PRIOR TO SAE ONSET: 1146 MG, ?DATE OF MOST RECENT DOSE OF STU
     Route: 042
     Dates: start: 20181031
  2. PARACETAMOL [Concomitant]
     Active Substance: ACETAMINOPHEN
     Route: 048
     Dates: start: 20190426
  3. TRASTUZUMAB. [Suspect]
     Active Substance: TRASTUZUMAB
     Dosage: LOADING DOSE
     Route: 041
     Dates: start: 20181227
  4. PROPOFOL. [Concomitant]
     Active Substance: PROPOFOL
  5. PACLITAXEL. [Suspect]
     Active Substance: PACLITAXEL
     Dosage: DOSE OF LAST STUDY DRUG A ADMINISTERED PRIOR TO SAE ONSET: 153.6 MG, ?DATE OF MOST RECENT DOSE OF ST
     Route: 042
     Dates: start: 20181227
  6. FENTANYL. [Concomitant]
     Active Substance: FENTANYL
  7. TRASTUZUMAB. [Suspect]
     Active Substance: TRASTUZUMAB
     Dosage: MAINTENANCE DOSE?DOSE OF LAST STUDY DRUG A ADMINISTERED PRIOR TO SAE ONSET: 480 MG, ?DATE OF MOST RE
     Route: 042
  8. FERROUS SULPHATE [FERROUS SULFATE] [Concomitant]
     Active Substance: FERROUS SULFATE
     Indication: ANAEMIA
     Route: 048
     Dates: start: 20181227
  9. PERTUZUMAB. [Suspect]
     Active Substance: PERTUZUMAB
     Dosage: MAINTENANCE DOSE?DOSE OF LAST STUDY DRUG A ADMINISTERED PRIOR TO SAE ONSET: 420 MG  MAINTENANCE DOSE
     Route: 042
  10. PERTUZUMAB. [Suspect]
     Active Substance: PERTUZUMAB
     Dosage: LOADING DOSE
     Route: 042
     Dates: start: 20181227
  11. DOXORUBICIN [Suspect]
     Active Substance: DOXORUBICIN
     Dosage: DOSE OF LAST STUDY DRUG A ADMINISTERED PRIOR TO SAE ONSET: 114.6 MG, ?DATE OF MOST RECENT DOSE OF ST
     Route: 042
     Dates: start: 20181031

REACTIONS (1)
  - Cardiac failure [Fatal]

NARRATIVE: CASE EVENT DATE: 20191223
